FAERS Safety Report 7816072-8 (Version None)
Quarter: 2011Q4

REPORT INFORMATION
  Report Type: 
  Country: None (occurrence: None)
  Receive Date: 20111015
  Receipt Date: 20111005
  Transmission Date: 20120403
  Serious: Yes (Other)
  Sender: FDA-Public Use
  Company Number: US-ASTRAZENECA-2011SE59956

PATIENT
  Sex: Female

DRUGS (1)
  1. SEROQUEL XR [Suspect]
     Route: 048

REACTIONS (5)
  - DISTURBANCE IN ATTENTION [None]
  - COGNITIVE DISORDER [None]
  - DEPRESSION [None]
  - DRUG RESISTANCE [None]
  - ANXIETY [None]
